FAERS Safety Report 11881019 (Version 1)
Quarter: 2015Q4

REPORT INFORMATION
  Report Type: Spontaneous
  Country: US (occurrence: US)
  Receive Date: 20151230
  Receipt Date: 20151230
  Transmission Date: 20160305
  Serious: No
  Sender: FDA-Public Use
  Company Number: US-CELGENEUS-USA-2015126066

PATIENT
  Sex: Male
  Weight: 108.51 kg

DRUGS (7)
  1. ZETIA [Concomitant]
     Active Substance: EZETIMIBE
     Indication: BLOOD CHOLESTEROL
     Route: 048
     Dates: start: 2013
  2. EPLERENONE. [Concomitant]
     Active Substance: EPLERENONE
     Indication: BLOOD PRESSURE MEASUREMENT
     Route: 048
     Dates: start: 2015
  3. LISINOPRIL. [Concomitant]
     Active Substance: LISINOPRIL
     Indication: BLOOD PRESSURE MEASUREMENT
     Route: 048
     Dates: start: 2012
  4. CARVEDILOL. [Concomitant]
     Active Substance: CARVEDILOL
     Indication: CARDIAC DISORDER
     Route: 048
     Dates: start: 2013
  5. CARVEDILOL. [Concomitant]
     Active Substance: CARVEDILOL
     Route: 048
     Dates: start: 2013
  6. HYDRALAZINE [Concomitant]
     Active Substance: HYDRALAZINE HYDROCHLORIDE
     Indication: BLOOD PRESSURE MEASUREMENT
     Route: 048
     Dates: start: 2015
  7. OTEZLA [Suspect]
     Active Substance: APREMILAST
     Indication: PSORIASIS
     Dosage: 60 MILLIGRAM
     Route: 048
     Dates: start: 2015

REACTIONS (2)
  - Upper respiratory tract infection [Not Recovered/Not Resolved]
  - Bronchitis chronic [Not Recovered/Not Resolved]

NARRATIVE: CASE EVENT DATE: 2015
